FAERS Safety Report 14756866 (Version 1)
Quarter: 2018Q2

REPORT INFORMATION
  Report Type: Report from Study
  Country: BR (occurrence: BR)
  Receive Date: 20180413
  Receipt Date: 20180413
  Transmission Date: 20180711
  Serious: Yes (Other)
  Sender: FDA-Public Use
  Company Number: BR-SA-2017SA140478

PATIENT
  Age: 37 Year
  Sex: Female
  Weight: 62 kg

DRUGS (2)
  1. CERDELGA [Suspect]
     Active Substance: ELIGLUSTAT
     Indication: GAUCHER^S DISEASE TYPE I
     Route: 048
     Dates: start: 20120126, end: 20120126
  2. CERDELGA [Suspect]
     Active Substance: ELIGLUSTAT
     Indication: GAUCHER^S DISEASE TYPE I
     Route: 048
     Dates: start: 20120126, end: 20171117

REACTIONS (10)
  - Bone pain [Unknown]
  - Fatigue [Unknown]
  - Osteopenia [Unknown]
  - Abortion spontaneous [Unknown]
  - Hepatic fibrosis [Not Recovered/Not Resolved]
  - Asthenia [Unknown]
  - Bone marrow infiltration [Unknown]
  - Infarction [Unknown]
  - Pathological fracture [Unknown]
  - Exposure during pregnancy [Recovered/Resolved]

NARRATIVE: CASE EVENT DATE: 20171211
